FAERS Safety Report 9481708 (Version 1)
Quarter: 2013Q3

REPORT INFORMATION
  Report Type: Spontaneous
  Country: US (occurrence: US)
  Receive Date: 20130828
  Receipt Date: 20130828
  Transmission Date: 20140515
  Serious: Yes (Other)
  Sender: FDA-Public Use
  Company Number: US-AMGEN-KDL221568

PATIENT
  Age: 38 Year
  Sex: Male

DRUGS (2)
  1. ENBREL [Suspect]
     Indication: ANKYLOSING SPONDYLITIS
     Dosage: 50 MG, QWK
     Route: 058
     Dates: start: 20070207
  2. IBUPROFEN [Concomitant]

REACTIONS (8)
  - Hypersensitivity [Unknown]
  - Nasal congestion [Unknown]
  - Eye irritation [Unknown]
  - Eye pruritus [Unknown]
  - Hepatic pain [Recovered/Resolved]
  - Back pain [Unknown]
  - Arthralgia [Unknown]
  - Decreased appetite [Recovered/Resolved]
